FAERS Safety Report 25605398 (Version 1)
Quarter: 2025Q3

REPORT INFORMATION
  Report Type: Spontaneous
  Country: EU (occurrence: EU)
  Receive Date: 20250725
  Receipt Date: 20250725
  Transmission Date: 20251021
  Serious: Yes (Other)
  Sender: MYLAN
  Company Number: EU-BRISTOL-MYERS SQUIBB COMPANY-2025-093647

PATIENT
  Age: 49 Year
  Sex: Male

DRUGS (28)
  1. ETOPOSIDE [Suspect]
     Active Substance: ETOPOSIDE
     Indication: Medulloblastoma
  2. ETOPOSIDE [Suspect]
     Active Substance: ETOPOSIDE
  3. ETOPOSIDE [Suspect]
     Active Substance: ETOPOSIDE
     Route: 065
  4. ETOPOSIDE [Suspect]
     Active Substance: ETOPOSIDE
     Route: 065
  5. ETOPOSIDE [Suspect]
     Active Substance: ETOPOSIDE
  6. ETOPOSIDE [Suspect]
     Active Substance: ETOPOSIDE
  7. ETOPOSIDE [Suspect]
     Active Substance: ETOPOSIDE
     Route: 065
  8. ETOPOSIDE [Suspect]
     Active Substance: ETOPOSIDE
     Route: 065
  9. FENOFIBRATE [Suspect]
     Active Substance: FENOFIBRATE
     Indication: Medulloblastoma
     Dosage: 90 MILLIGRAM/SQ. METER, QD
  10. FENOFIBRATE [Suspect]
     Active Substance: FENOFIBRATE
     Dosage: 90 MILLIGRAM/SQ. METER, QD
     Route: 048
  11. FENOFIBRATE [Suspect]
     Active Substance: FENOFIBRATE
     Dosage: 90 MILLIGRAM/SQ. METER, QD
     Route: 048
  12. FENOFIBRATE [Suspect]
     Active Substance: FENOFIBRATE
     Dosage: 90 MILLIGRAM/SQ. METER, QD
  13. CELECOXIB [Suspect]
     Active Substance: CELECOXIB
     Indication: Medulloblastoma
     Dosage: 800 MILLIGRAM, BID (0.5 DAY)
  14. CELECOXIB [Suspect]
     Active Substance: CELECOXIB
     Dosage: 800 MILLIGRAM, BID (0.5 DAY)
     Route: 048
  15. CELECOXIB [Suspect]
     Active Substance: CELECOXIB
     Dosage: 800 MILLIGRAM, BID (0.5 DAY)
     Route: 048
  16. CELECOXIB [Suspect]
     Active Substance: CELECOXIB
     Dosage: 800 MILLIGRAM, BID (0.5 DAY)
  17. THALIDOMIDE [Suspect]
     Active Substance: THALIDOMIDE
     Indication: Medulloblastoma
     Dosage: 3 MILLIGRAM/KILOGRAM, QD
  18. THALIDOMIDE [Suspect]
     Active Substance: THALIDOMIDE
     Dosage: 3 MILLIGRAM/KILOGRAM, QD
     Route: 048
  19. THALIDOMIDE [Suspect]
     Active Substance: THALIDOMIDE
     Dosage: 3 MILLIGRAM/KILOGRAM, QD
     Route: 048
  20. THALIDOMIDE [Suspect]
     Active Substance: THALIDOMIDE
     Dosage: 3 MILLIGRAM/KILOGRAM, QD
  21. CYCLOPHOSPHAMIDE [Suspect]
     Active Substance: CYCLOPHOSPHAMIDE
     Indication: Medulloblastoma
  22. CYCLOPHOSPHAMIDE [Suspect]
     Active Substance: CYCLOPHOSPHAMIDE
     Route: 065
  23. CYCLOPHOSPHAMIDE [Suspect]
     Active Substance: CYCLOPHOSPHAMIDE
     Route: 065
  24. CYCLOPHOSPHAMIDE [Suspect]
     Active Substance: CYCLOPHOSPHAMIDE
  25. BEVACIZUMAB [Suspect]
     Active Substance: BEVACIZUMAB
     Indication: Medulloblastoma
     Dosage: 10 MILLIGRAM/KILOGRAM, BIWEEKLY
  26. BEVACIZUMAB [Suspect]
     Active Substance: BEVACIZUMAB
     Dosage: 10 MILLIGRAM/KILOGRAM, BIWEEKLY
     Route: 042
  27. BEVACIZUMAB [Suspect]
     Active Substance: BEVACIZUMAB
     Dosage: 10 MILLIGRAM/KILOGRAM, BIWEEKLY
     Route: 042
  28. BEVACIZUMAB [Suspect]
     Active Substance: BEVACIZUMAB
     Dosage: 10 MILLIGRAM/KILOGRAM, BIWEEKLY

REACTIONS (4)
  - Neutropenia [Unknown]
  - Neurotoxicity [Unknown]
  - Lymphopenia [Unknown]
  - Off label use [Unknown]
